FAERS Safety Report 11922233 (Version 1)
Quarter: 2016Q1

REPORT INFORMATION
  Report Type: Spontaneous
  Country: US (occurrence: US)
  Receive Date: 20160115
  Receipt Date: 20160115
  Transmission Date: 20160526
  Serious: Yes (Hospitalization)
  Sender: FDA-Public Use
  Company Number: US-VERTEX PHARMACEUTICALS-2016-000225

PATIENT
  Sex: Male

DRUGS (9)
  1. SODIUM CHLORIDE. [Concomitant]
     Active Substance: SODIUM CHLORIDE
  2. CETRIZINE [Concomitant]
     Active Substance: CETIRIZINE HYDROCHLORIDE
  3. CREON [Concomitant]
     Active Substance: PANCRELIPASE AMYLASE\PANCRELIPASE LIPASE\PANCRELIPASE PROTEASE
  4. DOXYCYCLINE. [Concomitant]
     Active Substance: DOXYCYCLINE
  5. MIRTAZAPINE. [Concomitant]
     Active Substance: MIRTAZAPINE
     Dosage: 15MG-30MG-45MG
  6. ESOMEPRAZOLE [Concomitant]
     Active Substance: ESOMEPRAZOLE
  7. ALBUTEROL. [Concomitant]
     Active Substance: ALBUTEROL
  8. FLUTICASONE [Concomitant]
     Active Substance: FLUTICASONE\FLUTICASONE PROPIONATE
  9. ORKAMBI [Suspect]
     Active Substance: IVACAFTOR\LUMACAFTOR
     Indication: CYSTIC FIBROSIS
     Dosage: 400MG/250MG, BID
     Route: 048
     Dates: start: 20150818

REACTIONS (1)
  - Hospitalisation [Unknown]

NARRATIVE: CASE EVENT DATE: 2016
